FAERS Safety Report 8161775-1 (Version None)
Quarter: 2012Q1

REPORT INFORMATION
  Report Type: 
  Country: None (occurrence: None)
  Receive Date: 20120224
  Receipt Date: 20110404
  Transmission Date: 20120608
  Serious: No
  Sender: FDA-Public Use
  Company Number: US-BRISTOL-MYERS SQUIBB COMPANY-15651359

PATIENT
  Age: 75 Year
  Sex: Male

DRUGS (2)
  1. GLUCOPHAGE [Suspect]
     Dosage: 1DF=2 TABS IN THE MORNING AND 1 TAB IN EVENING
  2. HUMULIN R [Suspect]
     Dosage: 1DF=40 UNITS IN THE MORNING AND EVENING

REACTIONS (1)
  - RENAL DISORDER [None]
